FAERS Safety Report 12590863 (Version 2)
Quarter: 2016Q3

REPORT INFORMATION
  Report Type: Spontaneous
  Country: NO (occurrence: NO)
  Receive Date: 20160726
  Receipt Date: 20160727
  Transmission Date: 20161109
  Serious: Yes (Life-Threatening, Hospitalization, Other)
  Sender: FDA-Public Use
  Company Number: NO-ABBVIE-16K-122-1683344-00

PATIENT
  Age: 38 Year
  Sex: Female

DRUGS (8)
  1. FOLIC ACID. [Concomitant]
     Active Substance: FOLIC ACID
     Indication: PRODUCT USED FOR UNKNOWN INDICATION
  2. PARACETAMOL [Concomitant]
     Active Substance: ACETAMINOPHEN
     Indication: PRODUCT USED FOR UNKNOWN INDICATION
  3. TRAMADOL. [Concomitant]
     Active Substance: TRAMADOL
     Indication: PRODUCT USED FOR UNKNOWN INDICATION
  4. PREDNISOLONE. [Concomitant]
     Active Substance: PREDNISOLONE
     Indication: PRODUCT USED FOR UNKNOWN INDICATION
     Dates: start: 2016, end: 2016
  5. RITALIN [Concomitant]
     Active Substance: METHYLPHENIDATE HYDROCHLORIDE
     Indication: ATTENTION DEFICIT/HYPERACTIVITY DISORDER
     Dates: end: 201602
  6. METHOTREXATE. [Concomitant]
     Active Substance: METHOTREXATE
     Indication: PRODUCT USED FOR UNKNOWN INDICATION
  7. HUMIRA [Suspect]
     Active Substance: ADALIMUMAB
     Indication: CROHN^S DISEASE
     Route: 058
     Dates: start: 20081203, end: 2009
  8. HUMIRA [Suspect]
     Active Substance: ADALIMUMAB
     Route: 058
     Dates: end: 20160321

REACTIONS (36)
  - Pneumonia [Unknown]
  - Diarrhoea [Unknown]
  - Skin disorder [Recovering/Resolving]
  - Night sweats [Recovering/Resolving]
  - Adjustment disorder [Unknown]
  - Colitis [Unknown]
  - Crohn^s disease [Unknown]
  - Abdominal pain upper [Unknown]
  - Arthralgia [Recovering/Resolving]
  - Feeling abnormal [Recovering/Resolving]
  - Suicide attempt [Unknown]
  - Asthenia [Unknown]
  - Biliary colic [Recovering/Resolving]
  - Bone pain [Recovering/Resolving]
  - Cholecystitis [Recovering/Resolving]
  - Rectal prolapse [Unknown]
  - Restless legs syndrome [Not Recovered/Not Resolved]
  - Osteopenia [Unknown]
  - Fatigue [Recovering/Resolving]
  - Muscle spasms [Recovering/Resolving]
  - Quality of life decreased [Recovering/Resolving]
  - Colitis [Unknown]
  - Dizziness [Recovered/Resolved]
  - Activities of daily living impaired [Recovering/Resolving]
  - Malaise [Recovering/Resolving]
  - Influenza [Recovering/Resolving]
  - Myocarditis [Unknown]
  - Infection [Unknown]
  - General physical health deterioration [Unknown]
  - Dyspnoea exertional [Unknown]
  - Sinusitis [Recovering/Resolving]
  - Chest discomfort [Unknown]
  - Abdominal pain upper [Recovering/Resolving]
  - Muscle spasms [Recovering/Resolving]
  - Depression [Recovering/Resolving]
  - Myoclonus [Unknown]

NARRATIVE: CASE EVENT DATE: 2009
